FAERS Safety Report 8857279 (Version 1)
Quarter: 2012Q4

REPORT INFORMATION
  Report Type: 
  Country: US (occurrence: US)
  Receive Date: 20121024
  Receipt Date: 20121024
  Transmission Date: 20130627
  Serious: Yes (Hospitalization)
  Sender: FDA-Public Use
  Company Number: US-BIOGENIDEC-2012BI045780

PATIENT
  Sex: Female

DRUGS (1)
  1. AVONEX [Suspect]
     Indication: MULTIPLE SCLEROSIS
     Route: 030

REACTIONS (13)
  - Nerve compression [Recovered/Resolved]
  - Glossopharyngeal neuralgia [Recovered/Resolved]
  - Migraine [Unknown]
  - Weight decreased [Unknown]
  - Odynophagia [Unknown]
  - Dysphagia [Unknown]
  - Dysphonia [Unknown]
  - Hemiparesis [Unknown]
  - Hyperreflexia [Unknown]
  - Cerebellar syndrome [Unknown]
  - Ataxia [Unknown]
  - Headache [Unknown]
  - Middle insomnia [Unknown]
